FAERS Safety Report 5647281-4 (Version None)
Quarter: 2008Q1

REPORT INFORMATION
  Report Type: 
  Country: None (occurrence: None)
  Receive Date: 20080303
  Receipt Date: 20080221
  Transmission Date: 20080703
  Serious: Yes (Other)
  Sender: FDA-Public Use
  Company Number: US-JNJFOC-20080206732

PATIENT

DRUGS (3)
  1. EXTRA STRENGTH TYLENOL [Suspect]
  2. EXTRA STRENGTH TYLENOL [Suspect]
     Indication: ARTHRITIS
  3. PROPOXYPHENE NAPSYLATE [Concomitant]
     Indication: ARTHRITIS

REACTIONS (2)
  - HEPATIC CYST [None]
  - INTENTIONAL DRUG MISUSE [None]
